FAERS Safety Report 8841764 (Version 7)
Quarter: 2013Q1

REPORT INFORMATION
  Report Type: Report from Study
  Country: GB (occurrence: GB)
  Receive Date: 20121016
  Receipt Date: 20130215
  Transmission Date: 20140127
  Serious: Yes (Hospitalization, Other)
  Sender: FDA-Public Use
  Company Number: GB-JNJFOC-20121004016

PATIENT
  Age: 47 Year
  Sex: Female
  Weight: 56 kg

DRUGS (15)
  1. ABIRATERONE ACETATE [Suspect]
     Indication: BREAST CANCER
     Dosage: OPEN LABEL PHASE, CROSS OVER DURING SITE VISIT ON 24-SEP-2012
     Route: 048
  2. ABIRATERONE ACETATE [Suspect]
     Indication: BREAST CANCER
     Dosage: MOST RECENT DOSE WAS ON 06-SEP-2012
     Route: 048
     Dates: start: 20120625, end: 20120906
  3. PROCHLORPERAZINE [Concomitant]
     Indication: NAUSEA
     Route: 048
     Dates: start: 20120826, end: 20120906
  4. HYDROCORTISONE [Concomitant]
     Indication: ADRENOCORTICAL INSUFFICIENCY ACUTE
     Route: 065
     Dates: start: 20120907, end: 20120909
  5. HYDROCORTISONE [Concomitant]
     Indication: ADRENOCORTICAL INSUFFICIENCY ACUTE
     Route: 065
     Dates: start: 20120910, end: 20120913
  6. HYDROCORTISONE [Concomitant]
     Indication: ADRENOCORTICAL INSUFFICIENCY ACUTE
     Route: 065
     Dates: start: 20120930
  7. HYDROCORTISONE [Concomitant]
     Indication: ADRENOCORTICAL INSUFFICIENCY ACUTE
     Dosage: 50 MG FOUR TIME A DAY
     Route: 065
     Dates: start: 20120926
  8. HYDROCORTISONE [Concomitant]
     Indication: ADRENOCORTICAL INSUFFICIENCY ACUTE
     Route: 065
     Dates: start: 20120921
  9. HYDROCORTISONE [Concomitant]
     Indication: ADRENOCORTICAL INSUFFICIENCY ACUTE
     Dosage: 20MG EVERY MORNING AND 10MG EVERY EVENING
     Route: 065
     Dates: end: 20120906
  10. HYDROCORTISONE [Concomitant]
     Indication: BLOOD CORTISOL DECREASED
     Route: 065
     Dates: start: 20120930
  11. HYDROCORTISONE [Concomitant]
     Indication: BLOOD CORTISOL DECREASED
     Dosage: 20MG EVERY MORNING AND 10MG EVERY EVENING
     Route: 065
     Dates: end: 20120906
  12. HYDROCORTISONE [Concomitant]
     Indication: BLOOD CORTISOL DECREASED
     Route: 065
     Dates: start: 20120921
  13. HYDROCORTISONE [Concomitant]
     Indication: BLOOD CORTISOL DECREASED
     Dosage: 50 MG FOUR TIME A DAY
     Route: 065
     Dates: start: 20120926
  14. HYDROCORTISONE [Concomitant]
     Indication: BLOOD CORTISOL DECREASED
     Route: 065
     Dates: start: 20120910, end: 20120913
  15. HYDROCORTISONE [Concomitant]
     Indication: BLOOD CORTISOL DECREASED
     Route: 065
     Dates: start: 20120907, end: 20120909

REACTIONS (2)
  - Fatigue [Recovered/Resolved]
  - Blood cortisol decreased [Recovered/Resolved]
